FAERS Safety Report 4687802-1 (Version None)
Quarter: 2005Q2

REPORT INFORMATION
  Report Type: 
  Country: None (occurrence: None)
  Receive Date: 20050610
  Receipt Date: 20050419
  Transmission Date: 20051028
  Serious: Yes (Death, Hospitalization)
  Sender: FDA-Public Use
  Company Number: FR-SANOFI-SYNTHELABO-A01200502662

PATIENT
  Sex: Female

DRUGS (10)
  1. PLAVIX [Suspect]
     Indication: MYOCARDIAL INFARCTION
     Route: 048
     Dates: start: 20020101, end: 20050101
  2. PLAVIX [Suspect]
     Indication: CORONARY ARTERIAL STENT INSERTION
     Route: 048
     Dates: start: 20020101, end: 20050101
  3. KARDEGIC [Suspect]
     Indication: MYOCARDIAL INFARCTION
     Route: 048
     Dates: start: 20020101
  4. KARDEGIC [Suspect]
     Indication: CORONARY ARTERIAL STENT INSERTION
     Route: 048
     Dates: start: 20020101
  5. ACEBUTOLOL [Concomitant]
     Indication: DRUG USE FOR UNKNOWN INDICATION
     Dosage: UNK
     Route: 065
  6. CELEBREX [Concomitant]
     Indication: DRUG USE FOR UNKNOWN INDICATION
     Dosage: UNK
     Route: 065
  7. TRIATEC [Concomitant]
     Indication: DRUG USE FOR UNKNOWN INDICATION
     Dosage: UNK
     Route: 065
  8. ALLOPURINOL [Concomitant]
     Indication: DRUG USE FOR UNKNOWN INDICATION
     Dosage: UNK
     Route: 065
  9. NOVATREX [Concomitant]
     Indication: DRUG USE FOR UNKNOWN INDICATION
     Dosage: UNK
     Route: 065
  10. CORTANCYL [Concomitant]
     Indication: DRUG USE FOR UNKNOWN INDICATION
     Dosage: UNK
     Route: 065

REACTIONS (9)
  - ANAEMIA [None]
  - ARTERIAL THROMBOSIS LIMB [None]
  - DRUG INEFFECTIVE [None]
  - FALL [None]
  - HAEMOGLOBIN DECREASED [None]
  - HYPOVOLAEMIC SHOCK [None]
  - MYOCARDIAL INFARCTION [None]
  - PERIPHERAL ISCHAEMIA [None]
  - RETROPERITONEAL HAEMATOMA [None]
